FAERS Safety Report 11514755 (Version 4)
Quarter: 2016Q2

REPORT INFORMATION
  Report Type: Spontaneous
  Country: DE (occurrence: DE)
  Receive Date: 20150916
  Receipt Date: 20160418
  Transmission Date: 20160815
  Serious: Yes (Other)
  Sender: FDA-Public Use
  Company Number: DE-OTSUKA-2015_009704

PATIENT
  Age: 80 Year
  Sex: Male

DRUGS (2)
  1. SAMSCA [Suspect]
     Active Substance: TOLVAPTAN
     Indication: INAPPROPRIATE ANTIDIURETIC HORMONE SECRETION
     Dosage: 15 MG, UNK
     Route: 065
     Dates: start: 201407, end: 201502
  2. SAMSCA [Suspect]
     Active Substance: TOLVAPTAN
     Dosage: 15 MG, UNK
     Route: 065

REACTIONS (6)
  - Eczema [Not Recovered/Not Resolved]
  - Urine output increased [Unknown]
  - Fall [Unknown]
  - Incorrect drug administration duration [Unknown]
  - Syncope [Recovered/Resolved]
  - Thirst [Unknown]
